FAERS Safety Report 7832127-6 (Version None)
Quarter: 2011Q4

REPORT INFORMATION
  Report Type: 
  Country: None (occurrence: None)
  Receive Date: 20111022
  Receipt Date: 20101025
  Transmission Date: 20120403
  Serious: No
  Sender: FDA-Public Use
  Company Number: US-BAYER-201039028NA

PATIENT
  Age: 27 Year
  Sex: Male

DRUGS (3)
  1. CIPROFLOXACIN [Suspect]
     Indication: URINARY TRACT INFECTION
  2. MIRALAX [Suspect]
     Indication: CONSTIPATION
  3. DOXYCYCLINE [Suspect]
     Indication: URINARY TRACT INFECTION

REACTIONS (3)
  - HEADACHE [None]
  - DIZZINESS [None]
  - CONSTIPATION [None]
